FAERS Safety Report 21535513 (Version 2)
Quarter: 2022Q4

REPORT INFORMATION
  Report Type: Spontaneous
  Country: US (occurrence: US)
  Receive Date: 20221101
  Receipt Date: 20221102
  Transmission Date: 20230113
  Serious: No
  Sender: FDA-Public Use
  Company Number: US-BRISTOL-MYERS SQUIBB COMPANY-2022-130317

PATIENT
  Age: 59 Year
  Sex: Male

DRUGS (2)
  1. SPRYCEL [Suspect]
     Active Substance: DASATINIB
     Indication: White blood cell count increased
     Route: 048
     Dates: start: 20220519
  2. SPRYCEL [Suspect]
     Active Substance: DASATINIB
     Route: 048
     Dates: start: 20200624

REACTIONS (6)
  - Diarrhoea [Unknown]
  - Constipation [Unknown]
  - Mental disorder [Unknown]
  - General physical condition abnormal [Unknown]
  - Bowel movement irregularity [Unknown]
  - Intentional product use issue [Unknown]
